FAERS Safety Report 7042802-1 (Version None)
Quarter: 2010Q4

REPORT INFORMATION
  Report Type: 
  Country: None (occurrence: None)
  Receive Date: 20101013
  Receipt Date: 20100315
  Transmission Date: 20110411
  Serious: No
  Sender: FDA-Public Use
  Company Number: US-ASTRAZENECA-2010SE11519

PATIENT
  Sex: Female
  Weight: 66.7 kg

DRUGS (5)
  1. SYMBICORT [Suspect]
     Indication: ASTHMA
     Dosage: 2 PUFFS
     Route: 055
     Dates: start: 20090901
  2. PREMARIN [Concomitant]
  3. LEVOXYL [Concomitant]
  4. LIPITOR [Concomitant]
  5. COUMADIN [Concomitant]

REACTIONS (6)
  - DEAFNESS [None]
  - DYSGEUSIA [None]
  - PAROSMIA [None]
  - PNEUMONIA [None]
  - SINUSITIS [None]
  - WEIGHT INCREASED [None]
